FAERS Safety Report 8270393-6 (Version None)
Quarter: 2012Q2

REPORT INFORMATION
  Report Type: 
  Country: None (occurrence: None)
  Receive Date: 20120410
  Receipt Date: 20120402
  Transmission Date: 20120825
  Serious: Yes (Other)
  Sender: FDA-Public Use
  Company Number: IN-UCBSA-054659

PATIENT
  Sex: Female

DRUGS (2)
  1. LEVETIRACETAM [Suspect]
     Indication: EPILEPSY
     Dosage: DAILY DOSE: 2000 (FIRST TRIMESTER)
  2. PHENYTOIN [Concomitant]
     Indication: EPILEPSY
     Dosage: FIRST TRIMESTER

REACTIONS (2)
  - PREGNANCY [None]
  - ABORTION SPONTANEOUS [None]
